FAERS Safety Report 18322226 (Version 1)
Quarter: 2020Q3

REPORT INFORMATION
  Report Type: Spontaneous
  Country: US (occurrence: US)
  Receive Date: 20200928
  Receipt Date: 20200928
  Transmission Date: 20201103
  Serious: No
  Sender: FDA-Public Use
  Company Number: None

PATIENT
  Age: 12 Year
  Sex: Female
  Weight: 32.85 kg

DRUGS (2)
  1. METHYLPHENIDATE ER 54 MG OSM TABLET [Suspect]
     Active Substance: METHYLPHENIDATE HYDROCHLORIDE
     Indication: ATTENTION DEFICIT HYPERACTIVITY DISORDER
     Dosage: ?          QUANTITY:90 CAPSULE(S);?
     Route: 048
     Dates: start: 20200508, end: 20200808
  2. MULTIVITAMIN [Concomitant]
     Active Substance: VITAMINS

REACTIONS (10)
  - Disturbance in attention [None]
  - Regressive behaviour [None]
  - Social avoidant behaviour [None]
  - Product substitution issue [None]
  - Anger [None]
  - Psychomotor hyperactivity [None]
  - Drug delivery system issue [None]
  - Psychiatric symptom [None]
  - Anxiety [None]
  - Rebound effect [None]

NARRATIVE: CASE EVENT DATE: 20200508
